FAERS Safety Report 8332532-8 (Version None)
Quarter: 2012Q2

REPORT INFORMATION
  Report Type: 
  Country: None (occurrence: None)
  Receive Date: 20120503
  Receipt Date: 20120430
  Transmission Date: 20120825
  Serious: No
  Sender: FDA-Public Use
  Company Number: US-PFIZER INC-2012106239

PATIENT
  Sex: Female
  Weight: 71.655 kg

DRUGS (10)
  1. LYRICA [Suspect]
     Indication: ARTHRALGIA
  2. NITROSTAT [Concomitant]
     Indication: CORONARY ARTERY DISEASE
     Dosage: UNK
     Route: 048
  3. LYRICA [Suspect]
     Indication: MYALGIA
     Dosage: 100MG IN MORNING AND 100MG IN AFTERNOON AND 200 MG AT NIGHT
     Route: 048
     Dates: start: 20110101
  4. DILTIAZEM [Concomitant]
     Indication: CORONARY ARTERY DISEASE
     Dosage: AT 240MG ONCE ON MONDAYS, WEDNESDAYS, FRIDAYS AND SUNDAYS AND AT 120MG ONCE ON OTHER DAYS
  5. LYRICA [Suspect]
     Indication: CHRONIC FATIGUE SYNDROME
  6. DILTIAZEM [Concomitant]
     Indication: ARTERIOSPASM CORONARY
  7. MIRTAZAPINE [Concomitant]
     Indication: DEPRESSION
     Dosage: 60 MG DAILY AT NIGHT
     Route: 048
  8. NITRO-DUR [Concomitant]
     Indication: CORONARY ARTERY DISEASE
     Dosage: UNK, DAILY
     Route: 062
  9. NITRO-DUR [Concomitant]
     Indication: ARTERIOSPASM CORONARY
  10. NITROSTAT [Concomitant]
     Indication: ARTERIOSPASM CORONARY

REACTIONS (2)
  - WEIGHT DECREASED [None]
  - MYALGIA [None]
